FAERS Safety Report 17687583 (Version 3)
Quarter: 2020Q4

REPORT INFORMATION
  Report Type: Spontaneous
  Country: US (occurrence: US)
  Receive Date: 20200421
  Receipt Date: 20201008
  Transmission Date: 20210113
  Serious: No
  Sender: FDA-Public Use
  Company Number: US-SHIRE-US202014001

PATIENT
  Age: 55 Year
  Sex: Female

DRUGS (8)
  1. GATTEX [Suspect]
     Active Substance: TEDUGLUTIDE\WATER
     Indication: SHORT-BOWEL SYNDROME
     Dosage: 2.54 MILLIGRAM, 1X/DAY:QD
     Route: 065
  2. GATTEX [Suspect]
     Active Substance: TEDUGLUTIDE\WATER
     Dosage: .254 MILLIGRAM, 1X/DAY:QD
     Route: 058
     Dates: start: 20151106
  3. GATTEX [Suspect]
     Active Substance: TEDUGLUTIDE\WATER
     Indication: SHORT-BOWEL SYNDROME
     Dosage: 2.54 MILLIGRAM, 1X/DAY:QD
     Route: 065
  4. GATTEX [Suspect]
     Active Substance: TEDUGLUTIDE\WATER
     Dosage: .254 MILLIGRAM, 1X/DAY:QD
     Route: 058
     Dates: start: 20151106
  5. GATTEX [Suspect]
     Active Substance: TEDUGLUTIDE\WATER
     Indication: SHORT-BOWEL SYNDROME
     Dosage: 2.54 MILLIGRAM, 1X/DAY:QD
     Route: 065
  6. GATTEX [Suspect]
     Active Substance: TEDUGLUTIDE\WATER
     Indication: SHORT-BOWEL SYNDROME
     Dosage: 2.54 MILLIGRAM, 1X/DAY:QD
     Route: 065
  7. GATTEX [Suspect]
     Active Substance: TEDUGLUTIDE\WATER
     Dosage: .254 MILLIGRAM, 1X/DAY:QD
     Route: 058
     Dates: start: 20151106
  8. GATTEX [Suspect]
     Active Substance: TEDUGLUTIDE\WATER
     Dosage: .254 MILLIGRAM, 1X/DAY:QD
     Route: 058
     Dates: start: 20151106

REACTIONS (3)
  - Anal incontinence [Unknown]
  - Needle issue [Unknown]
  - Inappropriate schedule of product administration [Unknown]

NARRATIVE: CASE EVENT DATE: 20200912
